FAERS Safety Report 7398374-5 (Version None)
Quarter: 2011Q2

REPORT INFORMATION
  Report Type: 
  Country: None (occurrence: None)
  Receive Date: 20110406
  Receipt Date: 20110331
  Transmission Date: 20111010
  Serious: Yes (Other)
  Sender: FDA-Public Use
  Company Number: US-RB-025046-11

PATIENT
  Sex: Male

DRUGS (3)
  1. SUBOXONE [Suspect]
     Indication: DRUG DEPENDENCE
     Route: 060
     Dates: start: 20110308, end: 20110301
  2. SUBOXONE [Suspect]
     Route: 060
     Dates: start: 20110201, end: 20110307
  3. SUBOXONE [Suspect]
     Route: 060
     Dates: start: 20110330

REACTIONS (3)
  - OVERDOSE [None]
  - SUICIDAL IDEATION [None]
  - DRUG WITHDRAWAL SYNDROME [None]
